FAERS Safety Report 11684924 (Version 2)
Quarter: 2015Q4

REPORT INFORMATION
  Report Type: Spontaneous
  Country: JP (occurrence: JP)
  Receive Date: 20151030
  Receipt Date: 20151209
  Transmission Date: 20160304
  Serious: Yes (Other)
  Sender: FDA-Public Use
  Company Number: JP-009507513-1510JPN011487

PATIENT
  Age: 35 Year
  Sex: Female

DRUGS (3)
  1. VANCOMYCIN HYDROCHLORIDE. [Suspect]
     Active Substance: VANCOMYCIN HYDROCHLORIDE
     Indication: LISTERIA SEPSIS
     Dosage: 1 G, QD
     Route: 051
  2. PROPYLTHIOURACIL. [Concomitant]
     Active Substance: PROPYLTHIOURACIL
     Indication: HYPOTHYROIDISM
     Dosage: DAILY DOSE UNKNOWN
     Route: 048
  3. IMIPENEM AND CILASTATIN [Suspect]
     Active Substance: CILASTATIN SODIUM\IMIPENEM
     Indication: LISTERIA SEPSIS
     Dosage: 2 G, QD
     Route: 051

REACTIONS (2)
  - Abortion missed [Recovered/Resolved]
  - Maternal exposure during pregnancy [Recovered/Resolved]
